APPROVED DRUG PRODUCT: THORAZINE
Active Ingredient: CHLORPROMAZINE HYDROCHLORIDE
Strength: 200MG
Dosage Form/Route: CAPSULE, EXTENDED RELEASE;ORAL
Application: N011120 | Product #019
Applicant: GLAXOSMITHKLINE
Approved: Approved Prior to Jan 1, 1982 | RLD: No | RS: No | Type: DISCN